FAERS Safety Report 6528339-4 (Version None)
Quarter: 2010Q1

REPORT INFORMATION
  Report Type: 
  Country: None (occurrence: None)
  Receive Date: 20100106
  Receipt Date: 20091229
  Transmission Date: 20100710
  Serious: Yes (Hospitalization, Other)
  Sender: FDA-Public Use
  Company Number: PHHY2009ZA56380

PATIENT
  Sex: Female

DRUGS (5)
  1. DIOVAN HCT [Suspect]
     Dosage: 160/12.5 MG
  2. DIOVAN HCT [Suspect]
     Dosage: 320/12.5 MG
  3. AMLODIPINE [Concomitant]
  4. BISOPROLOL [Concomitant]
     Dosage: 0.5 DF, DAILY
  5. AMLOC [Concomitant]

REACTIONS (6)
  - ANKLE FRACTURE [None]
  - ANKLE OPERATION [None]
  - BLOOD PRESSURE INADEQUATELY CONTROLLED [None]
  - OEDEMA PERIPHERAL [None]
  - PNEUMONIA [None]
  - THYROID DISORDER [None]
